FAERS Safety Report 9678299 (Version 1)
Quarter: 2013Q4

REPORT INFORMATION
  Report Type: Spontaneous
  Country: FR (occurrence: FR)
  Receive Date: 20131108
  Receipt Date: 20131108
  Transmission Date: 20140711
  Serious: Yes (Hospitalization)
  Sender: FDA-Public Use
  Company Number: FR-ALLERGAN-1317281US

PATIENT
  Age: 73 Year
  Sex: Male

DRUGS (6)
  1. ACULAR 0,5% [Suspect]
     Indication: PRODUCT USED FOR UNKNOWN INDICATION
     Dosage: UNK
     Route: 047
     Dates: start: 20130619
  2. ACULAR 0,5% [Suspect]
     Dosage: UNK
     Route: 047
     Dates: start: 20130724
  3. MYDRIATICUM [Suspect]
     Indication: PRODUCT USED FOR UNKNOWN INDICATION
     Dosage: UNK
     Route: 047
     Dates: start: 20130619
  4. PHENYLEPHRINE HYDROCHLORIDE [Suspect]
     Indication: PRODUCT USED FOR UNKNOWN INDICATION
     Dosage: UNK
     Route: 047
     Dates: start: 20130619
  5. IOPIDINE [Suspect]
     Indication: PRODUCT USED FOR UNKNOWN INDICATION
     Dosage: UNK
     Route: 047
     Dates: start: 20130619
  6. IOPIDINE [Suspect]
     Dosage: UNK
     Dates: start: 20130724

REACTIONS (1)
  - Condition aggravated [Recovering/Resolving]
